FAERS Safety Report 19091375 (Version 3)
Quarter: 2024Q1

REPORT INFORMATION
  Report Type: Report from Study
  Country: CZ (occurrence: CZ)
  Receive Date: 20210405
  Receipt Date: 20240314
  Transmission Date: 20240409
  Serious: Yes (Death, Hospitalization, Other)
  Sender: FDA-Public Use
  Company Number: CZ-CELLTRION INC.-2021CZ004355

PATIENT

DRUGS (15)
  1. RITUXIMAB [Suspect]
     Active Substance: RITUXIMAB
     Indication: Diffuse large B-cell lymphoma
     Dosage: 375 MG/M2; ON DAY 1 OF EACH CYCLE FOR UP TO 6 CYCLES (DOSAGE FORM: INFUSION, SOLUTION)
     Route: 042
     Dates: start: 20200113, end: 20200114
  2. POLATUZUMAB VEDOTIN [Suspect]
     Active Substance: POLATUZUMAB VEDOTIN
     Indication: Diffuse large B-cell lymphoma
     Dosage: 1.8 MG/KG; ON DAY 2 OF CYCLE 1, THEN ON DAY 1 OF EACH SUBSEQUENT CYCLE FOR UP TO 6 CYCLES
     Route: 042
     Dates: start: 20200113, end: 20200114
  3. BENDAMUSTINE [Suspect]
     Active Substance: BENDAMUSTINE
     Indication: Diffuse large B-cell lymphoma
     Dosage: 90 MG/M2; ON DAYS 2 AND 3 OF CYCLE 1, THEN ON DAYS 1 AND 2 OF EACH SUBSEQUENT CYCLE FOR UP TO 6 CYCL
     Route: 042
     Dates: start: 20200113, end: 20200114
  4. ALGIFEN [FENPIVERINIUM BROMIDE;METAMIZOLE SODIUM;PITOFENONE HYDROCHLOR [Concomitant]
     Dosage: PEG GTT 30-30-30 DROPS
     Dates: start: 20200121, end: 20200123
  5. FLUCONAZOLE [Concomitant]
     Active Substance: FLUCONAZOLE
     Dosage: 100 0-1-0
     Dates: start: 20200121, end: 20200123
  6. LEVOFLOXACIN [Concomitant]
     Active Substance: LEVOFLOXACIN
     Dosage: 500 PEG ORALLY 1-0-1
     Dates: start: 20200121, end: 20200123
  7. NADROPARIN CALCIUM [Concomitant]
     Active Substance: NADROPARIN CALCIUM
     Dosage: 0.3 ML 0-0-1
     Route: 058
     Dates: start: 20200121, end: 20200123
  8. ARCHIFAR [Concomitant]
     Dosage: 2 G EVERY 8 HOURS
     Route: 042
     Dates: start: 20200121, end: 20200123
  9. LEVOTHYROXINE SODIUM [Concomitant]
     Active Substance: LEVOTHYROXINE SODIUM
     Dosage: 50 PEG 1-0-0
     Dates: start: 20200121, end: 20200123
  10. NAC AL [Concomitant]
     Dosage: 600 PEG 1-1-0
     Route: 065
  11. GRANISETRON HYDROCHLORIDE [Concomitant]
     Active Substance: GRANISETRON HYDROCHLORIDE
     Dosage: 1-0-0 AS NEEDED PEG
     Dates: start: 20200121, end: 20200123
  12. OMEPRAZOLE [Concomitant]
     Active Substance: OMEPRAZOLE
     Dosage: 40 PEG 1-0- 0
     Dates: start: 20200121, end: 20200123
  13. VALACYCLOVIR [Concomitant]
     Active Substance: VALACYCLOVIR HYDROCHLORIDE
     Dosage: 500 PEG 0-1-0
     Dates: start: 20200121, end: 20200123
  14. POTASSIUM CHLORIDE [Concomitant]
     Active Substance: POTASSIUM CHLORIDE
     Dosage: PEG 1-0-0 1 G
     Dates: start: 20200121, end: 20200123
  15. ERDOSTEINE [Concomitant]
     Active Substance: ERDOSTEINE
     Dosage: PEG 300 1-1-0
     Dates: start: 20200121, end: 20200123

REACTIONS (5)
  - Cardiac failure [Fatal]
  - Sepsis [Unknown]
  - Pneumonia [Unknown]
  - Urinary tract infection [Unknown]
  - Product use issue [Unknown]

NARRATIVE: CASE EVENT DATE: 20200121
